FAERS Safety Report 7503040-9 (Version None)
Quarter: 2011Q2

REPORT INFORMATION
  Report Type: 
  Country: None (occurrence: None)
  Receive Date: 20110525
  Receipt Date: 20101123
  Transmission Date: 20111010
  Serious: No
  Sender: FDA-Public Use
  Company Number: US-NOVEN-ALL1-2010-05225

PATIENT
  Sex: Male
  Weight: 20.408 kg

DRUGS (1)
  1. DAYTRANA [Suspect]
     Dosage: 15 MG, 1X/DAY:QD
     Route: 062
     Dates: start: 20090101, end: 20100101

REACTIONS (2)
  - PRODUCT ADHESION ISSUE [None]
  - DRUG INEFFECTIVE [None]
